FAERS Safety Report 10006537 (Version 1)
Quarter: 2014Q1

REPORT INFORMATION
  Report Type: Spontaneous
  Country: US (occurrence: US)
  Receive Date: 20140313
  Receipt Date: 20140313
  Transmission Date: 20141002
  Serious: Yes (Hospitalization, Other)
  Sender: FDA-Public Use
  Company Number: US-ASTRAZENECA-2014SE16226

PATIENT
  Age: 67 Year
  Sex: Female
  Weight: 98.9 kg

DRUGS (9)
  1. LISINOPRIL [Suspect]
     Indication: BLOOD PRESSURE ABNORMAL
     Route: 048
     Dates: start: 2012, end: 2013
  2. LISINOPRIL [Suspect]
     Indication: BLOOD PRESSURE ABNORMAL
     Route: 048
     Dates: start: 2013
  3. BRILINTA [Suspect]
     Indication: STENT PLACEMENT
     Route: 048
     Dates: start: 20140131
  4. PLAVIX [Suspect]
     Route: 065
     Dates: end: 201304
  5. PLAVIX [Suspect]
     Route: 065
     Dates: start: 201307
  6. ASPRIN [Concomitant]
     Route: 048
     Dates: start: 20140131
  7. HUMILIN [Concomitant]
     Indication: DIABETES MELLITUS
     Dosage: SLIDING SCALE QAM
  8. HUMALOG [Concomitant]
     Indication: DIABETES MELLITUS
     Dosage: SLIDING SCALE HS
  9. DOCUSATE [Concomitant]
     Indication: FAECES HARD

REACTIONS (8)
  - Coronary artery occlusion [Recovered/Resolved]
  - Eye haemorrhage [Recovered/Resolved]
  - Blood pressure increased [Recovered/Resolved]
  - Sleep apnoea syndrome [Not Recovered/Not Resolved]
  - Dyspnoea [Unknown]
  - Dyspnoea [Unknown]
  - Rash maculo-papular [Recovered/Resolved]
  - Nervousness [Recovered/Resolved]
